FAERS Safety Report 12917286 (Version 1)
Quarter: 2016Q4

REPORT INFORMATION
  Report Type: Spontaneous
  Country: US (occurrence: US)
  Receive Date: 20161107
  Receipt Date: 20161107
  Transmission Date: 20170207
  Serious: No
  Sender: FDA-Public Use
  Company Number: US-JAZZ-2016-US-017507

PATIENT
  Sex: Female

DRUGS (18)
  1. XYREM [Suspect]
     Active Substance: SODIUM OXYBATE
     Indication: NARCOLEPSY
     Dosage: 2.5 G, BID
     Route: 048
     Dates: start: 201505
  2. VALIUM [Concomitant]
     Active Substance: DIAZEPAM
  3. NUVIGIL [Concomitant]
     Active Substance: ARMODAFINIL
  4. TYLENOL WITH CODEINE [Concomitant]
     Active Substance: ACETAMINOPHEN\CODEINE PHOSPHATE
  5. GABAPENTIN. [Concomitant]
     Active Substance: GABAPENTIN
  6. PLAQUENIL                          /00072602/ [Concomitant]
     Active Substance: HYDROXYCHLOROQUINE DIPHOSPHATE
  7. SKELAXINE [Concomitant]
     Active Substance: ACETAMINOPHEN\CHLORZOXAZONE
  8. ZANTAC [Concomitant]
     Active Substance: RANITIDINE HYDROCHLORIDE
  9. TOPAMAX [Suspect]
     Active Substance: TOPIRAMATE
     Indication: MIGRAINE
  10. CYMBALTA [Concomitant]
     Active Substance: DULOXETINE HYDROCHLORIDE
  11. WELLBUTRIN [Concomitant]
     Active Substance: BUPROPION HYDROCHLORIDE
  12. TRAMADOL HCL [Concomitant]
     Active Substance: TRAMADOL HYDROCHLORIDE
  13. XYREM [Suspect]
     Active Substance: SODIUM OXYBATE
     Indication: CATAPLEXY
  14. RECLIPSEN 28 [Concomitant]
  15. DEPLIN [Concomitant]
     Active Substance: LEVOMEFOLATE CALCIUM
  16. TRAZODONE [Concomitant]
     Active Substance: TRAZODONE HYDROCHLORIDE
  17. ACIPHEX [Concomitant]
     Active Substance: RABEPRAZOLE SODIUM
  18. ZOFRAN [Concomitant]
     Active Substance: ONDANSETRON HYDROCHLORIDE

REACTIONS (8)
  - Anxiety [Not Recovered/Not Resolved]
  - Wrong technique in product usage process [Unknown]
  - Cognitive disorder [Unknown]
  - Hypervigilance [Not Recovered/Not Resolved]
  - Depression [Not Recovered/Not Resolved]
  - Confusional state [Unknown]
  - Migraine [Recovered/Resolved]
  - Pain [Not Recovered/Not Resolved]
